FAERS Safety Report 5598130-4 (Version None)
Quarter: 2008Q1

REPORT INFORMATION
  Report Type: 
  Country: None (occurrence: None)
  Receive Date: 20080116
  Receipt Date: 20080102
  Transmission Date: 20080703
  Serious: Yes (Other)
  Sender: FDA-Public Use
  Company Number: E3810-01365-SPO-FR

PATIENT
  Age: 52 Year
  Sex: Male
  Weight: 116 kg

DRUGS (8)
  1. RABEPRAZOLE SODIUM [Suspect]
     Indication: GASTRIC ULCER
     Dosage: 20 MG, ORAL
     Route: 048
     Dates: start: 20070301, end: 20070701
  2. VALSARTAN [Concomitant]
  3. NICARDIPINE HCL [Concomitant]
  4. ASPEGIC 1000 [Concomitant]
  5. ATORVASTATIN CALCIUM [Concomitant]
  6. FUROSEMIDE [Concomitant]
  7. ALLOPURINOL [Concomitant]
  8. PERSANTINE [Concomitant]

REACTIONS (3)
  - CONDITION AGGRAVATED [None]
  - HAEMOGLOBIN DECREASED [None]
  - RENAL FAILURE [None]
